FAERS Safety Report 5168526-3 (Version None)
Quarter: 2006Q4

REPORT INFORMATION
  Report Type: 
  Country: None (occurrence: None)
  Receive Date: 20061201
  Receipt Date: 20060727
  Transmission Date: 20070319
  Serious: Yes (Death)
  Sender: FDA-Public Use
  Company Number: 2005153492

PATIENT
  Age: 45 Year
  Sex: Female
  Weight: 52.4 kg

DRUGS (8)
  1. REVATIO [Suspect]
     Indication: PULMONARY HYPERTENSION
     Dosage: 75 MG (25 MG, 3 IN 1 D), ORAL
     Route: 048
     Dates: start: 20030303, end: 20041107
  2. DORNER (BERAPROST SODIUM) [Concomitant]
  3. LASIX [Concomitant]
  4. ALLOPURINOL [Concomitant]
  5. ZANTAC [Concomitant]
  6. ALDACTONE [Concomitant]
  7. WARFARIN SODIUM [Concomitant]
  8. RANITIDINE [Concomitant]

REACTIONS (4)
  - GENERAL PHYSICAL HEALTH DETERIORATION [None]
  - OEDEMA [None]
  - OFF LABEL USE [None]
  - RIGHT VENTRICULAR FAILURE [None]
